FAERS Safety Report 8844682 (Version 1)
Quarter: 2012Q4

REPORT INFORMATION
  Report Type: Spontaneous
  Country: US (occurrence: None)
  Receive Date: 20121016
  Receipt Date: 20121016
  Transmission Date: 20130627
  Serious: Yes (Hospitalization)
  Sender: FDA-Public Use
  Company Number: None

PATIENT
  Age: 56 Year
  Sex: Female
  Weight: 60 kg

DRUGS (20)
  1. PERCOCET [Suspect]
     Indication: FIBROMYALGIA WORSENED
     Dosage: 1-2 tablets
Q6HR PRN
     Route: 048
  2. TRAMADOL [Suspect]
  3. DIAZEPAM [Suspect]
  4. IMITREX [Suspect]
  5. FLEXERIL [Suspect]
  6. TRAZADONE [Suspect]
  7. CYMBALTA [Suspect]
  8. NORTRIPTYLINE [Suspect]
  9. ATARAX [Suspect]
  10. PROTONIX [Concomitant]
  11. PROGESTERONE [Concomitant]
  12. FISH OIL [Concomitant]
  13. VIT C [Concomitant]
  14. RED YEAST RICE [Concomitant]
  15. BUMEX [Concomitant]
  16. ALOE VERA [Concomitant]
  17. MAG OX [Concomitant]
  18. CA+VIT D [Concomitant]
  19. DOXEFIN [Concomitant]
  20. PHENERGAN [Suspect]
     Indication: NAUSEA
     Dosage: prn
RECENT

REACTIONS (3)
  - Mental status changes [None]
  - Sedation [None]
  - Incorrect dose administered [None]
